FAERS Safety Report 17593454 (Version 2)
Quarter: 2020Q2

REPORT INFORMATION
  Report Type: Spontaneous
  Country: DE (occurrence: DE)
  Receive Date: 20200327
  Receipt Date: 20200420
  Transmission Date: 20200713
  Serious: Yes (Other)
  Sender: FDA-Public Use
  Company Number: NVSC2020DE085900

PATIENT
  Age: 65 Year
  Weight: 70 kg

DRUGS (5)
  1. ARCOXIA [Concomitant]
     Active Substance: ETORICOXIB
     Indication: SPONDYLOARTHROPATHY
     Dosage: 90 MG, QD (MORNING)
     Route: 048
  2. LODOTRA [Concomitant]
     Active Substance: PREDNISONE
     Indication: PRODUCT USED FOR UNKNOWN INDICATION
     Dosage: 5 MG, QD (NIGHT)
     Route: 065
  3. ARCOXIA [Concomitant]
     Active Substance: ETORICOXIB
     Indication: ENTERITIS
  4. COSENTYX [Suspect]
     Active Substance: SECUKINUMAB
     Indication: AXIAL SPONDYLOARTHRITIS
     Dosage: 150 MG, QMO, SINCE 2 YEARS
     Route: 058
     Dates: start: 20180323, end: 20190302
  5. COSENTYX [Suspect]
     Active Substance: SECUKINUMAB
     Indication: PSORIASIS
     Dosage: 300 MG, QMO, SINCE 1 YEAR AGO
     Route: 058
     Dates: start: 20190330

REACTIONS (9)
  - Skin plaque [Recovered/Resolved]
  - Bursitis [Recovered/Resolved]
  - Oropharyngeal pain [Not Recovered/Not Resolved]
  - Infection susceptibility increased [Recovered/Resolved]
  - Herpes virus infection [Recovered/Resolved]
  - Respiratory tract infection [Recovered/Resolved]
  - Aphthous ulcer [Recovered/Resolved]
  - Hemianopia homonymous [Recovered/Resolved]
  - Cyst [Recovered/Resolved]

NARRATIVE: CASE EVENT DATE: 201804
